FAERS Safety Report 12009415 (Version 1)
Quarter: 2016Q1

REPORT INFORMATION
  Report Type: Spontaneous
  Country: US (occurrence: US)
  Receive Date: 20160205
  Receipt Date: 20160205
  Transmission Date: 20160526
  Serious: Yes (Other)
  Sender: FDA-Public Use
  Company Number: US-APOTEX-2016AP006205

PATIENT
  Age: 77 Year
  Sex: Male

DRUGS (16)
  1. TAMSULOSIN [Concomitant]
     Active Substance: TAMSULOSIN
     Indication: GOUT
     Dosage: UNK
     Route: 065
  2. ALLOPURINOL TABLETS USP [Suspect]
     Active Substance: ALLOPURINOL
     Indication: BENIGN PROSTATIC HYPERPLASIA
  3. TAMSULOSIN [Concomitant]
     Active Substance: TAMSULOSIN
     Indication: BENIGN PROSTATIC HYPERPLASIA
  4. FINASTERIDE. [Concomitant]
     Active Substance: FINASTERIDE
     Indication: BENIGN PROSTATIC HYPERPLASIA
  5. ATORVASTATIN [Concomitant]
     Active Substance: ATORVASTATIN
     Indication: BENIGN PROSTATIC HYPERPLASIA
  6. FINASTERIDE. [Concomitant]
     Active Substance: FINASTERIDE
     Indication: GOUT
     Dosage: UNK
     Route: 065
  7. GARLIC                             /01570501/ [Concomitant]
     Indication: GOUT
     Dosage: UNK
     Route: 065
  8. ASPIRIN                            /00002701/ [Concomitant]
     Active Substance: ASPIRIN
     Indication: GOUT
     Dosage: 81 MG/DAY
     Route: 065
  9. ASPIRIN                            /00002701/ [Concomitant]
     Active Substance: ASPIRIN
     Indication: BENIGN PROSTATIC HYPERPLASIA
  10. VITAMIN D                          /00107901/ [Concomitant]
     Active Substance: ERGOCALCIFEROL
     Indication: GOUT
     Dosage: UNK
     Route: 065
  11. VITAMIN D                          /00107901/ [Concomitant]
     Active Substance: ERGOCALCIFEROL
     Indication: BENIGN PROSTATIC HYPERPLASIA
  12. ATORVASTATIN [Concomitant]
     Active Substance: ATORVASTATIN
     Indication: GOUT
     Dosage: UNK
     Route: 065
  13. GARLIC                             /01570501/ [Concomitant]
     Indication: BENIGN PROSTATIC HYPERPLASIA
  14. ALLOPURINOL TABLETS USP [Suspect]
     Active Substance: ALLOPURINOL
     Indication: GOUT
     Dosage: UNK
     Route: 065
  15. FISH OIL [Concomitant]
     Active Substance: FISH OIL
     Indication: GOUT
     Dosage: UNK
     Route: 065
  16. FISH OIL [Concomitant]
     Active Substance: FISH OIL
     Indication: BENIGN PROSTATIC HYPERPLASIA

REACTIONS (1)
  - Inflammatory bowel disease [Recovered/Resolved]
